FAERS Safety Report 5120194-2 (Version None)
Quarter: 2006Q4

REPORT INFORMATION
  Report Type: 
  Country: None (occurrence: None)
  Receive Date: 20061002
  Receipt Date: 20061002
  Transmission Date: 20070319
  Serious: No
  Sender: FDA-Public Use
  Company Number: None

PATIENT
  Age: 9 Year
  Sex: Female
  Weight: 23.6 kg

DRUGS (1)
  1. DOXORUBICIN [Suspect]
     Indication: EWING'S SARCOMA
     Dosage: 150 MG/M2 1
     Dates: start: 20050404, end: 20050404

REACTIONS (1)
  - MEDICATION ERROR [None]
